FAERS Safety Report 6196672-4 (Version None)
Quarter: 2009Q2

REPORT INFORMATION
  Report Type: 
  Country: None (occurrence: None)
  Receive Date: 20090520
  Receipt Date: 20090513
  Transmission Date: 20091009
  Serious: Yes (Other)
  Sender: FDA-Public Use
  Company Number: B0574792A

PATIENT
  Sex: Male

DRUGS (2)
  1. AVANDAMET [Suspect]
     Indication: DRUG USE FOR UNKNOWN INDICATION
     Dosage: 4MG PER DAY
     Route: 065
     Dates: start: 20060101
  2. THYREX [Concomitant]

REACTIONS (2)
  - CONDUCTION DISORDER [None]
  - ELECTROCARDIOGRAM ABNORMAL [None]
